FAERS Safety Report 11209650 (Version 1)
Quarter: 2015Q2

REPORT INFORMATION
  Report Type: Spontaneous
  Country: US (occurrence: US)
  Receive Date: 20150622
  Receipt Date: 20150622
  Transmission Date: 20150821
  Serious: Yes (Hospitalization)
  Sender: FDA-Public Use
  Company Number: US-MPIJNJ-2012-01292

PATIENT
  Age: 73 Year
  Sex: Male
  Weight: 71.2 kg

DRUGS (1)
  1. VELCADE [Suspect]
     Active Substance: BORTEZOMIB
     Indication: PLASMA CELL MYELOMA
     Dosage: 2.4 MG, 1/WEEK
     Route: 058
     Dates: start: 20110126

REACTIONS (4)
  - Dyspnoea [Unknown]
  - Pyrexia [Unknown]
  - Hypophagia [Unknown]
  - Mental status changes [Unknown]

NARRATIVE: CASE EVENT DATE: 20120202
